FAERS Safety Report 16310255 (Version 3)
Quarter: 2020Q1

REPORT INFORMATION
  Report Type: Spontaneous
  Country: US (occurrence: US)
  Receive Date: 20190514
  Receipt Date: 20200302
  Transmission Date: 20200409
  Serious: No
  Sender: FDA-Public Use
  Company Number: US-BIOMARINAP-US-2019-123512

PATIENT
  Sex: Female
  Weight: 61.5 kg

DRUGS (1)
  1. KUVAN [Suspect]
     Active Substance: SAPROPTERIN DIHYDROCHLORIDE
     Indication: PHENYLKETONURIA
     Dosage: 1100 MILLIGRAM, QD
     Route: 048
     Dates: start: 20180308

REACTIONS (3)
  - Dyspepsia [Unknown]
  - Headache [Unknown]
  - Product dose omission [Unknown]
